FAERS Safety Report 5330083-6 (Version None)
Quarter: 2007Q2

REPORT INFORMATION
  Report Type: 
  Country: None (occurrence: None)
  Receive Date: 20070521
  Receipt Date: 20070510
  Transmission Date: 20071010
  Serious: Yes (Other)
  Sender: FDA-Public Use
  Company Number: HU-ROCHE-491666

PATIENT
  Age: 18 Year
  Sex: Female
  Weight: 60 kg

DRUGS (1)
  1. ROACCUTAN [Suspect]
     Indication: ACNE CONGLOBATA
     Dosage: REPORTED AS 1X10 MG.
     Route: 048
     Dates: start: 20070321, end: 20070404

REACTIONS (2)
  - BREAST CYST [None]
  - GALACTORRHOEA [None]
